FAERS Safety Report 16140925 (Version 1)
Quarter: 2019Q2

REPORT INFORMATION
  Report Type: Report from Study
  Country: JP (occurrence: JP)
  Receive Date: 20190401
  Receipt Date: 20190401
  Transmission Date: 20190711
  Serious: Yes (Other)
  Sender: FDA-Public Use
  Company Number: JP-ROCHE-2291266

PATIENT

DRUGS (3)
  1. BEVACIZUMAB. [Suspect]
     Active Substance: BEVACIZUMAB
     Indication: NON-SMALL CELL LUNG CANCER
     Dosage: DAY 1
     Route: 042
  2. PACLITAXEL. [Suspect]
     Active Substance: PACLITAXEL
     Indication: NON-SMALL CELL LUNG CANCER
     Dosage: DAY 1
     Route: 065
  3. IRINOTECAN [Suspect]
     Active Substance: IRINOTECAN
     Indication: NON-SMALL CELL LUNG CANCER
     Dosage: ON DAY 1 AND 8
     Route: 065

REACTIONS (14)
  - Alanine aminotransferase increased [Unknown]
  - Leukopenia [Unknown]
  - Febrile neutropenia [Unknown]
  - Nausea [Unknown]
  - Thrombosis [Unknown]
  - Duodenal ulcer [Unknown]
  - Aspartate aminotransferase increased [Unknown]
  - Pneumonitis [Unknown]
  - Anaemia [Unknown]
  - Hypertension [Unknown]
  - Ileus [Unknown]
  - Haemorrhage [Unknown]
  - Neutropenia [Unknown]
  - Rash [Unknown]
